FAERS Safety Report 8594080-X (Version None)
Quarter: 2012Q3

REPORT INFORMATION
  Report Type: 
  Country: None (occurrence: None)
  Receive Date: 20120814
  Receipt Date: 20120731
  Transmission Date: 20120928
  Serious: Yes (Other)
  Sender: FDA-Public Use
  Company Number: GB-WATSON-2012-13721

PATIENT
  Age: 78 Year
  Sex: Female

DRUGS (4)
  1. TRAMADOL HCL [Concomitant]
     Indication: PRODUCT USED FOR UNKNOWN INDICATION
     Dosage: 100 MG UNKNOWN
     Route: 048
  2. LEVOTHYROXINE SODIUM [Concomitant]
     Indication: PRODUCT USED FOR UNKNOWN INDICATION
     Dosage: 75 MG, DAILY (50MG+25MG)
     Route: 048
  3. ACETAMINOPHEN [Concomitant]
     Dosage: 2 DF, TID 500MG TABLETS
     Route: 065
  4. SIMVASTATIN [Suspect]
     Indication: HYPERCHOLESTEROLAEMIA
     Dosage: 80 MG, DAILY (AT NIGHT). STARTED USING YEARS AGO.
     Route: 048
     Dates: end: 20120401

REACTIONS (2)
  - MUSCLE SPASMS [None]
  - PAIN [None]
